FAERS Safety Report 16970175 (Version 1)
Quarter: 2019Q4

REPORT INFORMATION
  Report Type: Spontaneous
  Country: US (occurrence: US)
  Receive Date: 20190911
  Receipt Date: 20190911
  Transmission Date: 20200122
  Serious: Yes (Hospitalization)
  Sender: FDA-Public Use
  Company Number: None

PATIENT
  Age: 61 Year
  Sex: Female

DRUGS (1)
  1. XELJANZ [Suspect]
     Active Substance: TOFACITINIB CITRATE
     Indication: RHEUMATOID ARTHRITIS
     Route: 048
     Dates: start: 20190612, end: 20190731

REACTIONS (4)
  - Cholecystectomy [None]
  - Therapy cessation [None]
  - Retinal tear [None]
  - Hepatic enzyme increased [None]

NARRATIVE: CASE EVENT DATE: 20190620
